FAERS Safety Report 12951747 (Version 1)
Quarter: 2016Q4

REPORT INFORMATION
  Report Type: Spontaneous
  Country: US (occurrence: US)
  Receive Date: 20161117
  Receipt Date: 20161117
  Transmission Date: 20170207
  Serious: No
  Sender: FDA-Public Use
  Company Number: US-WARNER CHILCOTT, LLC-1059704

PATIENT
  Age: 57 Year

DRUGS (6)
  1. LOSARTAN. [Concomitant]
     Active Substance: LOSARTAN
  2. ENABLEX [Suspect]
     Active Substance: DARIFENACIN HYDROBROMIDE
     Indication: HYPERTONIC BLADDER
     Route: 048
     Dates: start: 20160621
  3. METFORMIN [Concomitant]
     Active Substance: METFORMIN HYDROCHLORIDE
  4. ALFUZOSIN HYDROCHLORIDE. [Concomitant]
     Active Substance: ALFUZOSIN HYDROCHLORIDE
  5. FENOFIBRATE. [Concomitant]
     Active Substance: FENOFIBRATE
  6. ENABLEX [Suspect]
     Active Substance: DARIFENACIN HYDROBROMIDE
     Route: 048
     Dates: start: 201605, end: 201606

REACTIONS (2)
  - Pollakiuria [Recovered/Resolved]
  - Drug ineffective [Unknown]

NARRATIVE: CASE EVENT DATE: 201606
